FAERS Safety Report 25907340 (Version 1)
Quarter: 2025Q4

REPORT INFORMATION
  Report Type: Spontaneous
  Country: US (occurrence: US)
  Receive Date: 20251010
  Receipt Date: 20251010
  Transmission Date: 20260117
  Serious: Yes (Death, Life-Threatening, Hospitalization, Other)
  Sender: GRANULES PHARMACEUTICALS INC
  Company Number: US-GRANULES-US-2025GRALIT00563

PATIENT
  Age: 39 Year
  Sex: Male

DRUGS (3)
  1. METFORMIN HYDROCHLORIDE [Suspect]
     Active Substance: METFORMIN HYDROCHLORIDE
     Indication: Product used for unknown indication
     Route: 065
  2. ACETYLCYSTEINE [Concomitant]
     Active Substance: ACETYLCYSTEINE
     Indication: Product used for unknown indication
     Route: 065
  3. OXACILLIN [Concomitant]
     Active Substance: OXACILLIN SODIUM
     Indication: Staphylococcal sepsis
     Route: 042

REACTIONS (10)
  - Renal failure [Fatal]
  - Toxicity to various agents [Fatal]
  - Condition aggravated [Fatal]
  - Hypotension [Unknown]
  - Hypoxia [Unknown]
  - Jaundice [Unknown]
  - Hypervolaemia [Unknown]
  - Electrolyte imbalance [Unknown]
  - Lactic acidosis [Fatal]
  - Overdose [Unknown]
